FAERS Safety Report 4284346-6 (Version None)
Quarter: 2004Q1

REPORT INFORMATION
  Report Type: 
  Country: None (occurrence: None)
  Receive Date: 20040130
  Receipt Date: 20040108
  Transmission Date: 20041129
  Serious: Yes (Other)
  Sender: FDA-Public Use
  Company Number: USA040156126

PATIENT
  Sex: Female

DRUGS (2)
  1. HUMULIN L [Suspect]
     Indication: DIABETES MELLITUS INSULIN-DEPENDENT
     Dosage: 14 U/ IN THE MORNING
     Dates: start: 19931001, end: 20000101
  2. HUMULIN L [Suspect]
     Indication: DIABETES MELLITUS INSULIN-DEPENDENT
     Dosage: 6 U/AT 3 P.M.
     Dates: start: 19931001, end: 20000101

REACTIONS (3)
  - BLOOD GLUCOSE DECREASED [None]
  - DIABETIC COMA [None]
  - FEELING ABNORMAL [None]
